FAERS Safety Report 9142637 (Version 2)
Quarter: 2013Q2

REPORT INFORMATION
  Report Type: Spontaneous
  Country: US (occurrence: US)
  Receive Date: 20130306
  Receipt Date: 20130621
  Transmission Date: 20140414
  Serious: Yes (Other)
  Sender: FDA-Public Use
  Company Number: US-PAR PHARMACEUTICAL, INC-2013SCPR005582

PATIENT
  Sex: 0

DRUGS (3)
  1. CLONAZEPAM [Suspect]
     Indication: ANXIETY
     Dosage: 2 DF, QD
     Route: 048
     Dates: start: 2009
  2. CLONAZEPAM [Suspect]
     Dosage: 3 DF, QD
     Route: 048
     Dates: end: 20130218
  3. COUMADIN                           /00014802/ [Concomitant]
     Indication: COAGULOPATHY
     Dosage: 9 MG, UNKNOWN
     Route: 048
     Dates: start: 199210

REACTIONS (4)
  - Fluid retention [Recovered/Resolved]
  - Suspected counterfeit product [Unknown]
  - Aggression [Recovered/Resolved]
  - Irritability [Recovered/Resolved]
